FAERS Safety Report 24290462 (Version 1)
Quarter: 2024Q3

REPORT INFORMATION
  Report Type: Spontaneous
  Country: GB (occurrence: GB)
  Receive Date: 20240906
  Receipt Date: 20240906
  Transmission Date: 20241017
  Serious: Yes (Other)
  Sender: RANBAXY
  Company Number: GB-SUN PHARMACEUTICAL INDUSTRIES LTD-2024RR-466060

PATIENT
  Age: 45 Year
  Sex: Female
  Weight: 83 kg

DRUGS (25)
  1. CODEINE [Suspect]
     Active Substance: CODEINE
     Indication: Product used for unknown indication
     Dosage: 30 MILLIGRAM
     Route: 065
     Dates: start: 20240820
  2. NAPROXEN [Concomitant]
     Active Substance: NAPROXEN
     Indication: Ill-defined disorder
     Dosage: TAKE ONE TABLET UP TO TWO TIMES A DAY WITH FOOD...
     Route: 065
     Dates: start: 20240522, end: 20240619
  3. SCANDONEST PLAIN [Concomitant]
     Active Substance: MEPIVACAINE HYDROCHLORIDE
     Indication: Ill-defined disorder
     Dosage: 3%
     Route: 065
     Dates: start: 20240626, end: 20240627
  4. LINACLOTIDE [Concomitant]
     Active Substance: LINACLOTIDE
     Indication: Ill-defined disorder
     Dosage: TAKE ONE DAILY
     Route: 065
     Dates: start: 20230801
  5. ATENOLOL [Concomitant]
     Active Substance: ATENOLOL
     Indication: Ill-defined disorder
     Dosage: TAKE ONE TABLET TWICE A DAY TO PREVENT MIGRAINES
     Route: 065
     Dates: start: 20230801
  6. BRAVA PROTECTIVE [Concomitant]
     Indication: Ill-defined disorder
     Dosage: USE AS DIRECTED
     Route: 065
     Dates: start: 20230801
  7. CALCIUM CARBONATE\CHOLECALCIFEROL [Concomitant]
     Active Substance: CALCIUM CARBONATE\CHOLECALCIFEROL
     Indication: Ill-defined disorder
     Dosage: TAKE ONE TABLET IN THE MORNING
     Route: 065
     Dates: start: 20230801
  8. ELISSE [Concomitant]
     Indication: Ill-defined disorder
     Dosage: USE AS DIRECTED IT THE SKIN AROUND THE STOMA IS...
     Route: 065
     Dates: start: 20230801
  9. ESTRADIOL [Concomitant]
     Active Substance: ESTRADIOL
     Indication: Ill-defined disorder
     Dosage: CHANGE PATCH TWICE PER WEEK FOR (ESTROGEN ONLY)...
     Route: 065
     Dates: start: 20230801
  10. FOLIC ACID [Concomitant]
     Active Substance: FOLIC ACID
     Indication: Ill-defined disorder
     Dosage: ONE TABLET 6 DAYS A WEEK
     Route: 065
     Dates: start: 20230801
  11. BUTYLSCOPOLAMINE BROMIDE [Concomitant]
     Active Substance: BUTYLSCOPOLAMINE BROMIDE
     Indication: Ill-defined disorder
     Dosage: TAKE TWO 4 TIMES/DAY AS NEEDED FOR BOWELS/SPASM
     Route: 065
     Dates: start: 20230801
  12. LANSOPRAZOLE [Concomitant]
     Active Substance: LANSOPRAZOLE
     Indication: Ill-defined disorder
     Dosage: TAKE ONE ONCE DAILY
     Route: 065
     Dates: start: 20230801
  13. METOCLOPRAMIDE [Concomitant]
     Active Substance: METOCLOPRAMIDE
     Indication: Ill-defined disorder
     Dosage: TAKE ONE TABLET UP TO THREE TIMES A DAY AS NEED...
     Route: 065
     Dates: start: 20230801
  14. METHOTREXATE SODIUM [Concomitant]
     Active Substance: METHOTREXATE SODIUM
     Indication: Ill-defined disorder
     Dosage: USE ONE WEEKLY AS DIRECTED
     Route: 065
     Dates: start: 20230801
  15. MORPHINE [Concomitant]
     Active Substance: MORPHINE
     Indication: Ill-defined disorder
     Dosage: TAKE 2.5 TO 5MLS (=5MG OR 10MG) MAXIMUM EVERY 4...
     Route: 065
     Dates: start: 20230801
  16. RANITIDINE HYDROCHLORIDE [Concomitant]
     Active Substance: RANITIDINE HYDROCHLORIDE
     Indication: Ill-defined disorder
     Dosage: 10 ML AFTER MEALS AND AT BEDTIME, PEPPERMINT
     Route: 065
     Dates: start: 20230801
  17. RIZATRIPTAN [Concomitant]
     Active Substance: RIZATRIPTAN
     Indication: Ill-defined disorder
     Dosage: TAKE ONE AT ONSET OF MIGRAINE CAN BE REPEATED A...
     Route: 065
     Dates: start: 20230801
  18. SALT^S [Concomitant]
     Indication: Ill-defined disorder
     Dosage: USE AS DIRECTED EACH CANNISTER SHOULD LAST 15 B...
     Route: 065
     Dates: start: 20230801
  19. SENSURA MIO [Concomitant]
     Indication: Ill-defined disorder
     Dosage: USE AS DIRECTED
     Route: 065
     Dates: start: 20230801
  20. SHARPSGUARD [Concomitant]
     Indication: Ill-defined disorder
     Dosage: USE AS DIRECTED
     Route: 065
     Dates: start: 20230801
  21. SOLIFENACIN [Concomitant]
     Active Substance: SOLIFENACIN
     Indication: Ill-defined disorder
     Dosage: TAKE ONE DAILY TO TREAT BLADDER SYMPTOMS
     Route: 065
     Dates: start: 20230801
  22. VAGIFEM [Concomitant]
     Active Substance: ESTRADIOL
     Indication: Ill-defined disorder
     Dosage: NIGHTLY FOR 2 WEEKS THEN TWICE WEEKLY THEREAFTER
     Route: 065
     Dates: start: 20230801
  23. AMITRIPTYLINE [Concomitant]
     Active Substance: AMITRIPTYLINE
     Indication: Ill-defined disorder
     Dosage: TAKE 2 12HRS BEFORE WAKING
     Route: 065
     Dates: start: 20231011
  24. 3M CAVILON ANTIFUNGAL [Concomitant]
     Active Substance: MICONAZOLE NITRATE
     Indication: Ill-defined disorder
     Dosage: USE AS DIRECTED
     Route: 065
     Dates: start: 20231115
  25. CYCLIZINE [Concomitant]
     Active Substance: CYCLIZINE
     Indication: Ill-defined disorder
     Dosage: TAKE ONE TABLET UP TO THREE TIMES A DAY AS NEED...
     Route: 065
     Dates: start: 20240326

REACTIONS (1)
  - Aggression [Unknown]
